FAERS Safety Report 9349350 (Version 2)
Quarter: 2013Q3

REPORT INFORMATION
  Report Type: Spontaneous
  Country: US (occurrence: US)
  Receive Date: 20130614
  Receipt Date: 20130710
  Transmission Date: 20140515
  Serious: No
  Sender: FDA-Public Use
  Company Number: US-009507513-1305USA017849

PATIENT
  Sex: Female
  Weight: 63.39 kg

DRUGS (2)
  1. CLARITIN [Suspect]
     Indication: HOUSE DUST ALLERGY
     Dosage: UNK, UNKNOWN
     Route: 048
  2. CLARITIN [Suspect]
     Indication: MEDICAL OBSERVATION

REACTIONS (1)
  - Drug ineffective [Unknown]
